FAERS Safety Report 4570106-5 (Version None)
Quarter: 2005Q1

REPORT INFORMATION
  Report Type: 
  Country: None (occurrence: None)
  Receive Date: 20050125
  Receipt Date: 20050125
  Transmission Date: 20050727
  Serious: Yes (Hospitalization)
  Sender: FDA-Public Use
  Company Number: None

PATIENT
  Age: 49 Year
  Sex: Female
  Weight: 57.1532 kg

DRUGS (1)
  1. TIAGABINE 16MG BID [Suspect]
     Indication: NEUROPATHIC PAIN
     Dosage: 16MG BID
     Dates: start: 20040423

REACTIONS (4)
  - AGITATION [None]
  - CONVULSION [None]
  - DELUSION [None]
  - DEPRESSED LEVEL OF CONSCIOUSNESS [None]
